FAERS Safety Report 15645839 (Version 2)
Quarter: 2018Q4

REPORT INFORMATION
  Report Type: Spontaneous
  Country: JP (occurrence: JP)
  Receive Date: 20181121
  Receipt Date: 20181204
  Transmission Date: 20190205
  Serious: Yes (Hospitalization)
  Sender: FDA-Public Use
  Company Number: PHJP2018JP019612

PATIENT
  Age: 24 Year
  Sex: Male

DRUGS (1)
  1. CARBAMAZEPINE. [Suspect]
     Active Substance: CARBAMAZEPINE
     Indication: EPILEPSY
     Dosage: 154 DF, UNK
     Route: 048

REACTIONS (9)
  - Toxicity to various agents [Recovering/Resolving]
  - Seizure [Recovering/Resolving]
  - Arrhythmia [Recovering/Resolving]
  - Intentional overdose [Unknown]
  - Long QT syndrome [Recovering/Resolving]
  - Coma [Recovering/Resolving]
  - Respiratory distress [Recovering/Resolving]
  - Circulatory collapse [Recovering/Resolving]
  - Conduction disorder [Unknown]
